FAERS Safety Report 8044593-4 (Version None)
Quarter: 2012Q1

REPORT INFORMATION
  Report Type: 
  Country: None (occurrence: None)
  Receive Date: 20120113
  Receipt Date: 20120113
  Transmission Date: 20120608
  Serious: No
  Sender: FDA-Public Use
  Company Number: None

PATIENT
  Age: 36 Year
  Sex: Female
  Weight: 75.296 kg

DRUGS (2)
  1. GEODON [Suspect]
     Indication: BIPOLAR DISORDER
     Dosage: 40MG
  2. GEODON [Concomitant]
     Dosage: 80MG

REACTIONS (3)
  - PARAESTHESIA [None]
  - RESTLESSNESS [None]
  - BACK PAIN [None]
